FAERS Safety Report 4882498-8 (Version None)
Quarter: 2006Q1

REPORT INFORMATION
  Report Type: 
  Country: None (occurrence: None)
  Receive Date: 20060113
  Receipt Date: 20051231
  Transmission Date: 20060701
  Serious: Yes (Life-Threatening, Other)
  Sender: FDA-Public Use
  Company Number: 2005165890

PATIENT
  Age: 36 Year
  Sex: Male

DRUGS (3)
  1. GEODON [Suspect]
     Indication: SCHIZOPHRENIA
     Dosage: 120 MG (40 MG, 3 IN 1 D)
     Dates: start: 20050219, end: 20050606
  2. ATENOLOL [Concomitant]
  3. LIPITOR [Concomitant]

REACTIONS (1)
  - ACUTE MYOCARDIAL INFARCTION [None]
